FAERS Safety Report 8577188-4 (Version None)
Quarter: 2012Q3

REPORT INFORMATION
  Report Type: 
  Country: None (occurrence: None)
  Receive Date: 20120807
  Receipt Date: 20120730
  Transmission Date: 20120928
  Serious: Yes (Death)
  Sender: FDA-Public Use
  Company Number: VN-BAXTER-2012BAX013230

PATIENT
  Age: 40 Year
  Sex: Male

DRUGS (3)
  1. DIANEAL [Suspect]
     Dosage: 1 BAG
     Route: 033
     Dates: start: 20100728
  2. DIANEAL [Suspect]
     Dosage: 3 BAGS
     Route: 033
     Dates: start: 20100728
  3. DIANEAL [Suspect]
     Dates: start: 20120728

REACTIONS (1)
  - CARDIAC FAILURE [None]
